FAERS Safety Report 7023554-8 (Version None)
Quarter: 2010Q3

REPORT INFORMATION
  Report Type: 
  Country: None (occurrence: None)
  Receive Date: 20100929
  Receipt Date: 20100929
  Transmission Date: 20110219
  Serious: No
  Sender: FDA-Public Use
  Company Number: None

PATIENT
  Sex: Female
  Weight: 47.1741 kg

DRUGS (2)
  1. OXYCONTIN [Suspect]
     Indication: HIP ARTHROPLASTY
     Dosage: 1 4X DAILY
     Dates: start: 20100908, end: 20100912
  2. OXYCONTIN [Suspect]
     Indication: SURGERY
     Dosage: 1 4X DAILY
     Dates: start: 20100908, end: 20100912

REACTIONS (12)
  - ASTHENIA [None]
  - DIZZINESS [None]
  - DYSKINESIA [None]
  - DYSPNOEA [None]
  - DYSSTASIA [None]
  - FEELING OF BODY TEMPERATURE CHANGE [None]
  - FLUSHING [None]
  - INFLUENZA [None]
  - MALAISE [None]
  - PAIN [None]
  - PALPITATIONS [None]
  - PRODUCT SUBSTITUTION ISSUE [None]
